FAERS Safety Report 6676299-8 (Version None)
Quarter: 2010Q1

REPORT INFORMATION
  Report Type: 
  Country: None (occurrence: None)
  Receive Date: 20100331
  Receipt Date: 20090616
  Transmission Date: 20100710
  Serious: Yes (Other)
  Sender: FDA-Public Use
  Company Number: 2009215615

PATIENT
  Age: 75 Year
  Sex: Female

DRUGS (11)
  1. SUNITINIB MALATE [Suspect]
     Indication: GASTROINTESTINAL STROMAL TUMOUR
     Dosage: 50 MG, 1X/DAY
     Dates: start: 20090414
  2. COMPAZINE [Concomitant]
  3. DIGOXIN [Concomitant]
  4. LEVOTHYROXINE SODIUM [Concomitant]
  5. ALTERNAGEL (ALUMINIUM HYDROXIDE GEL, DRIED) [Concomitant]
  6. ZOFRAN [Concomitant]
  7. LOPERAMIDE (LOPERAMIDE) [Concomitant]
  8. COSOPT [Concomitant]
  9. LUMIGAN [Concomitant]
  10. CARDIZEM [Concomitant]
  11. DIOVANE (VALSARTAN) [Concomitant]

REACTIONS (5)
  - BLOOD COUNT ABNORMAL [None]
  - HYPONATRAEMIA [None]
  - MEDICATION ERROR [None]
  - NAUSEA [None]
  - VOMITING [None]
